FAERS Safety Report 12489023 (Version 1)
Quarter: 2016Q2

REPORT INFORMATION
  Report Type: Spontaneous
  Country: US (occurrence: US)
  Receive Date: 20160622
  Receipt Date: 20160622
  Transmission Date: 20160815
  Serious: Yes (Other)
  Sender: FDA-Public Use
  Company Number: US-BAXTER-2016BAX031791

PATIENT
  Age: 86 Year
  Sex: Male

DRUGS (6)
  1. TOBRAMYCIN. [Concomitant]
     Active Substance: TOBRAMYCIN
     Indication: DEVICE RELATED INFECTION
  2. VANCOMYCIN INJECTION, USP [Suspect]
     Active Substance: VANCOMYCIN
     Indication: DEVICE RELATED INFECTION
     Route: 042
  3. DAPTOMYCIN. [Concomitant]
     Active Substance: DAPTOMYCIN
     Indication: DEVICE RELATED INFECTION
  4. VANCOMYCIN INJECTION, USP [Suspect]
     Active Substance: VANCOMYCIN
     Route: 065
  5. TOBRAMYCIN. [Concomitant]
     Active Substance: TOBRAMYCIN
     Indication: DEVICE RELATED INFECTION
     Route: 065
  6. DAPTOMYCIN. [Concomitant]
     Active Substance: DAPTOMYCIN
     Indication: DEVICE RELATED INFECTION
     Route: 065

REACTIONS (1)
  - Linear IgA disease [Recovering/Resolving]
